FAERS Safety Report 5581930-4 (Version None)
Quarter: 2008Q1

REPORT INFORMATION
  Report Type: 
  Country: None (occurrence: None)
  Receive Date: 20080104
  Receipt Date: 20071228
  Transmission Date: 20080703
  Serious: Yes (Hospitalization)
  Sender: FDA-Public Use
  Company Number: A0697780A

PATIENT
  Age: 72 Year
  Sex: Female
  Weight: 60 kg

DRUGS (14)
  1. TOPOTECAN [Suspect]
     Dosage: 1.1MGM2 PER DAY
     Route: 048
     Dates: start: 20071112, end: 20071123
  2. RADIATION [Suspect]
     Dosage: 3GY PER DAY
     Route: 061
     Dates: start: 20071112, end: 20071123
  3. TRAMADOL HCL [Concomitant]
     Indication: BONE PAIN
     Dosage: 100MG TWICE PER DAY
     Route: 048
     Dates: start: 20071207
  4. DEXAVEN [Concomitant]
     Route: 042
     Dates: start: 20071203, end: 20071217
  5. DEXAMETHASONE TAB [Concomitant]
     Dosage: 2MG TWICE PER DAY
     Route: 048
     Dates: start: 20071218
  6. POLPRAZOL [Concomitant]
     Indication: PROPHYLAXIS
     Dosage: 20MG TWICE PER DAY
     Route: 048
     Dates: start: 20071207
  7. FUROSEMIDE [Concomitant]
     Dates: start: 20071203
  8. AMOXICLAV [Concomitant]
     Indication: BRONCHITIS
     Dosage: 1.2G THREE TIMES PER DAY
     Route: 042
     Dates: start: 20071203, end: 20071207
  9. DEFLEGMIN [Concomitant]
     Indication: BRONCHITIS
     Dosage: 30MG TWICE PER DAY
     Route: 048
     Dates: start: 20071203, end: 20071204
  10. THIOCODIN [Concomitant]
     Indication: BRONCHITIS
     Dosage: 315MG THREE TIMES PER DAY
     Route: 048
     Dates: start: 20071205, end: 20071209
  11. PACKED ERYTHROCYTES [Concomitant]
     Dosage: 2UNIT SINGLE DOSE
     Route: 042
     Dates: start: 20071217, end: 20071217
  12. CIPROFLOXACIN [Concomitant]
     Indication: URINARY TRACT INFECTION
     Dosage: 100MG TWICE PER DAY
     Route: 048
     Dates: start: 20071218
  13. CIPRONEX [Concomitant]
     Indication: URINARY TRACT INFECTION
     Dosage: 500MG TWICE PER DAY
     Route: 048
     Dates: start: 20071218
  14. KETOKONAZOL [Concomitant]
     Indication: URINARY TRACT INFECTION
     Dosage: 100MG PER DAY
     Route: 048
     Dates: start: 20071218

REACTIONS (2)
  - BLOOD CREATININE INCREASED [None]
  - DEHYDRATION [None]
